FAERS Safety Report 6641564-7 (Version None)
Quarter: 2010Q1

REPORT INFORMATION
  Report Type: 
  Country: None (occurrence: None)
  Receive Date: 20100317
  Receipt Date: 20100317
  Transmission Date: 20100710
  Serious: Yes (Other)
  Sender: FDA-Public Use
  Company Number: None

PATIENT
  Age: 73 Year
  Sex: Male
  Weight: 110 kg

DRUGS (11)
  1. REGULAR INSULIN [Suspect]
     Indication: TYPE 1 DIABETES MELLITUS
     Dosage: 7 UNITS/HR CONTINUOUS INFUSION IV
     Route: 042
     Dates: start: 20100113
  2. HEPARIN [Concomitant]
  3. AMPICILLIN AND SULBACTAM [Concomitant]
  4. CASPOFUNGIN [Concomitant]
  5. CEFEPIME [Concomitant]
  6. CHLORHEXIDINE GLUCONATE [Concomitant]
  7. DAPTOMYCIN [Concomitant]
  8. HYDROCORTISONE [Concomitant]
  9. METRONIDAZOLE [Concomitant]
  10. RANITIDINE [Concomitant]
  11. PHENYLEPHRINE [Concomitant]

REACTIONS (1)
  - HYPOGLYCAEMIA [None]
